FAERS Safety Report 24030278 (Version 2)
Quarter: 2024Q3

REPORT INFORMATION
  Report Type: Spontaneous
  Country: HU (occurrence: HU)
  Receive Date: 20240628
  Receipt Date: 20240702
  Transmission Date: 20241017
  Serious: Yes (Other)
  Sender: NOVARTIS
  Company Number: HU-ABBVIE-5411086

PATIENT
  Age: 36 Year
  Sex: Female

DRUGS (8)
  1. CYCLOSPORINE [Suspect]
     Active Substance: CYCLOSPORINE
     Indication: Colitis ulcerative
     Dosage: UNK
     Route: 065
     Dates: start: 201306, end: 201310
  2. CYCLOSPORINE [Suspect]
     Active Substance: CYCLOSPORINE
     Dosage: UNK
     Route: 065
     Dates: start: 201502
  3. ADALIMUMAB [Suspect]
     Active Substance: ADALIMUMAB\ISOPROPYL ALCOHOL
     Indication: Colitis ulcerative
     Dosage: UNK
     Route: 058
     Dates: start: 2012
  4. SULFASALAZINE [Suspect]
     Active Substance: SULFASALAZINE
     Indication: Colitis ulcerative
     Dosage: UNK
     Route: 065
     Dates: start: 200710
  5. MESALAMINE [Suspect]
     Active Substance: MESALAMINE
     Indication: Colitis ulcerative
     Dosage: UNK
     Route: 065
     Dates: start: 200710
  6. MESALAMINE [Suspect]
     Active Substance: MESALAMINE
     Dosage: UNK
     Route: 065
  7. MESALAMINE [Suspect]
     Active Substance: MESALAMINE
     Dosage: UNK
     Route: 065
     Dates: end: 200710
  8. SIMPONI [Concomitant]
     Active Substance: GOLIMUMAB
     Indication: Colitis ulcerative
     Dosage: UNK
     Route: 065
     Dates: start: 201408

REACTIONS (8)
  - Pyoderma gangrenosum [Unknown]
  - Hypertrichosis [Unknown]
  - Tendonitis [Unknown]
  - Cutaneous symptom [Unknown]
  - Therapeutic product effect incomplete [Unknown]
  - Drug ineffective for unapproved indication [Unknown]
  - Drug ineffective [Unknown]
  - Off label use [Unknown]

NARRATIVE: CASE EVENT DATE: 20130101
